FAERS Safety Report 24918944 (Version 1)
Quarter: 2025Q1

REPORT INFORMATION
  Report Type: Spontaneous
  Country: FR (occurrence: FR)
  Receive Date: 20250204
  Receipt Date: 20250204
  Transmission Date: 20250409
  Serious: Yes (Other)
  Sender: CELLTRION
  Company Number: FR-SEATTLE GENETICS-2021SGN02205

PATIENT

DRUGS (9)
  1. TRASTUZUMAB [Suspect]
     Active Substance: TRASTUZUMAB
     Indication: HER2 positive breast cancer
     Route: 042
     Dates: start: 20210219
  2. TRASTUZUMAB [Suspect]
     Active Substance: TRASTUZUMAB
     Route: 042
     Dates: start: 20210312
  3. TUCATINIB [Suspect]
     Active Substance: TUCATINIB
     Indication: HER2 positive breast cancer
     Route: 048
     Dates: start: 20210219, end: 20210319
  4. TUCATINIB [Suspect]
     Active Substance: TUCATINIB
     Route: 048
     Dates: start: 20210325
  5. TUCATINIB [Suspect]
     Active Substance: TUCATINIB
     Route: 048
     Dates: start: 20210414
  6. CAPECITABINE [Suspect]
     Active Substance: CAPECITABINE
     Indication: HER2 positive breast cancer
     Route: 048
     Dates: start: 20210219
  7. CAPECITABINE [Suspect]
     Active Substance: CAPECITABINE
     Route: 048
     Dates: start: 20210430
  8. METOCLOPRAMIDE [Concomitant]
     Active Substance: METOCLOPRAMIDE
  9. PREGABALIN [Concomitant]
     Active Substance: PREGABALIN

REACTIONS (4)
  - Hyperbilirubinaemia [Recovered/Resolved]
  - Neutropenia [Unknown]
  - Hepatic cytolysis [Recovered/Resolved]
  - Thrombocytopenia [Unknown]

NARRATIVE: CASE EVENT DATE: 20210317
